FAERS Safety Report 16426351 (Version 2)
Quarter: 2019Q3

REPORT INFORMATION
  Report Type: Spontaneous
  Country: SE (occurrence: SE)
  Receive Date: 20190613
  Receipt Date: 20190701
  Transmission Date: 20191004
  Serious: No
  Sender: FDA-Public Use
  Company Number: SE-AMGEN-SWESP2019092327

PATIENT
  Age: 64 Year
  Sex: Male
  Weight: 80 kg

DRUGS (1)
  1. REPATHA [Suspect]
     Active Substance: EVOLOCUMAB
     Indication: LIPIDS INCREASED
     Dosage: UNK
     Route: 058
     Dates: start: 20190308

REACTIONS (1)
  - Feeling drunk [Recovered/Resolved]

NARRATIVE: CASE EVENT DATE: 20190308
